FAERS Safety Report 4845353-5 (Version None)
Quarter: 2005Q4

REPORT INFORMATION
  Report Type: 
  Country: None (occurrence: None)
  Receive Date: 20051205
  Receipt Date: 20051128
  Transmission Date: 20060501
  Serious: Yes (Other)
  Sender: FDA-Public Use
  Company Number: SE-GLAXOSMITHKLINE-B0402562A

PATIENT
  Sex: Female

DRUGS (2)
  1. MALARONE [Suspect]
     Indication: PROPHYLAXIS
     Route: 065
     Dates: end: 20051001
  2. NO CONCURRENT MEDICATION [Concomitant]

REACTIONS (5)
  - ANGIONEUROTIC OEDEMA [None]
  - ARTHROPOD BITE [None]
  - CIRCUMORAL OEDEMA [None]
  - RASH VESICULAR [None]
  - TRISMUS [None]
